FAERS Safety Report 7349777-6 (Version None)
Quarter: 2011Q1

REPORT INFORMATION
  Report Type: 
  Country: None (occurrence: None)
  Receive Date: 20110302
  Receipt Date: 20110217
  Transmission Date: 20110831
  Serious: Yes (Other)
  Sender: FDA-Public Use
  Company Number: 2011AP000283

PATIENT
  Age: 75 Year
  Sex: Female

DRUGS (4)
  1. AMLODIPINE BESYLATE [Suspect]
     Indication: HYPERTENSION
     Dosage: 5 MG;QD
  2. RIVAROXABAN [Suspect]
     Indication: JOINT ARTHROPLASTY
  3. RIVAROXABAN [Suspect]
     Indication: THROMBOSIS PROPHYLAXIS
  4. RAMIPRIL [Concomitant]

REACTIONS (1)
  - DEEP VEIN THROMBOSIS [None]
